FAERS Safety Report 25839809 (Version 1)
Quarter: 2025Q3

REPORT INFORMATION
  Report Type: Spontaneous
  Country: US (occurrence: US)
  Receive Date: 20250924
  Receipt Date: 20250924
  Transmission Date: 20251021
  Serious: No
  Sender: AMGEN
  Company Number: US-AMGEN-USASP2025189096

PATIENT
  Age: 26 Year
  Sex: Female

DRUGS (1)
  1. PROCYSBI [Suspect]
     Active Substance: CYSTEAMINE BITARTRATE
     Indication: Cystinosis
     Dosage: 975 MILLIGRAM, BID (TITRATING HER DOSE OF PROCYSBI)
     Route: 065

REACTIONS (2)
  - Product use complaint [Unknown]
  - Nausea [Unknown]
